FAERS Safety Report 23232942 (Version 2)
Quarter: 2024Q1

REPORT INFORMATION
  Report Type: Report from Study
  Country: CA (occurrence: CA)
  Receive Date: 20231128
  Receipt Date: 20240130
  Transmission Date: 20240410
  Serious: Yes (Hospitalization)
  Sender: FDA-Public Use
  Company Number: CA-Vifor (International) Inc.-VIT-2023-09171

PATIENT
  Age: 81 Year
  Sex: Male

DRUGS (2)
  1. AVACOPAN [Suspect]
     Active Substance: AVACOPAN
     Indication: Angiopathy
     Dosage: 30 MILLIGRAM, QD
     Route: 048
  2. AVACOPAN [Suspect]
     Active Substance: AVACOPAN
     Dosage: 10 MILLIGRAM, QD
     Route: 065
     Dates: start: 20231012

REACTIONS (4)
  - Hospitalisation [Recovered/Resolved]
  - Dialysis [Unknown]
  - Drug ineffective [Unknown]
  - Off label use [Unknown]

NARRATIVE: CASE EVENT DATE: 20231012
